FAERS Safety Report 11272861 (Version 7)
Quarter: 2015Q4

REPORT INFORMATION
  Report Type: Spontaneous
  Country: US (occurrence: US)
  Receive Date: 20150715
  Receipt Date: 20151124
  Transmission Date: 20160304
  Serious: Yes (Other)
  Sender: FDA-Public Use
  Company Number: US-PFIZER INC-2015229616

PATIENT
  Age: 67 Year
  Sex: Female
  Weight: 69 kg

DRUGS (15)
  1. SUTENT [Suspect]
     Active Substance: SUNITINIB MALATE
     Dosage: 37.5 MG, UNK
     Route: 048
     Dates: start: 2015, end: 2015
  2. AMLODIPINE [Concomitant]
     Active Substance: AMLODIPINE BESYLATE
     Dosage: 10 MG, 1X/DAY
  3. METFORMIN [Concomitant]
     Active Substance: METFORMIN HYDROCHLORIDE
     Indication: DIABETES MELLITUS
     Dosage: 750 MG, 2X/DAY
     Dates: start: 2006
  4. SUTENT [Suspect]
     Active Substance: SUNITINIB MALATE
     Dosage: 37.5 MG, 1X/DAY
     Dates: start: 2015, end: 20150928
  5. ASPIRIN /00002701/ [Concomitant]
     Active Substance: ASPIRIN
     Dosage: UNK
     Dates: start: 2006
  6. VITAMIN B12 [Concomitant]
     Active Substance: CYANOCOBALAMIN
     Dosage: 1000 MG, UNK
     Dates: start: 2010
  7. LIPITOR [Concomitant]
     Active Substance: ATORVASTATIN CALCIUM
     Indication: BLOOD CHOLESTEROL INCREASED
     Dosage: 20 MG, 1X/DAY
     Dates: start: 2008
  8. SUTENT [Suspect]
     Active Substance: SUNITINIB MALATE
     Indication: METASTATIC RENAL CELL CARCINOMA
     Dosage: 50 MG, CYCLIC (28 DAYS ON/14 DAYS OFF)
     Route: 048
     Dates: start: 20150622, end: 2015
  9. ZOFRAN [Concomitant]
     Active Substance: ONDANSETRON HYDROCHLORIDE
     Dosage: UNK
     Dates: start: 2015
  10. AMLODIPINE [Concomitant]
     Active Substance: AMLODIPINE BESYLATE
     Dosage: 5 MG, DAILY
     Dates: start: 2015
  11. BUPROPION SR [Concomitant]
     Active Substance: BUPROPION
     Indication: DEPRESSION
     Dosage: 150 MG, UNK
  12. WELLBUTRIN [Concomitant]
     Active Substance: BUPROPION HYDROCHLORIDE
     Dosage: UNK
     Dates: start: 2006
  13. LOMOTIL [Concomitant]
     Active Substance: ATROPINE SULFATE\DIPHENOXYLATE HYDROCHLORIDE
     Dosage: UNK
  14. MIRACLE MOUTH WASH [Concomitant]
     Active Substance: UNSPECIFIED INGREDIENT
     Dosage: UNK
  15. SUTENT [Suspect]
     Active Substance: SUNITINIB MALATE
     Dosage: 50 MG, DAILY (2 WEEKS ON/1 WEEK OFF)
     Route: 048
     Dates: start: 20150803, end: 2015

REACTIONS (28)
  - Asthenia [Not Recovered/Not Resolved]
  - Abdominal discomfort [Unknown]
  - Stomatitis [Recovered/Resolved]
  - Glossodynia [Unknown]
  - Blister [Unknown]
  - Hair colour changes [Not Recovered/Not Resolved]
  - Feeding disorder [Recovering/Resolving]
  - Skin discolouration [Not Recovered/Not Resolved]
  - Abdominal pain [Unknown]
  - Skin hypertrophy [Unknown]
  - Palmar-plantar erythrodysaesthesia syndrome [Unknown]
  - Oral pain [Unknown]
  - Weight decreased [Recovering/Resolving]
  - Fatigue [Not Recovered/Not Resolved]
  - Constipation [Not Recovered/Not Resolved]
  - Hypertension [Recovering/Resolving]
  - Dry skin [Unknown]
  - Pain in extremity [Unknown]
  - Pyrexia [Not Recovered/Not Resolved]
  - Gastrooesophageal reflux disease [Unknown]
  - Gallbladder disorder [Recovering/Resolving]
  - Rash [Unknown]
  - Yellow skin [Unknown]
  - Dysgeusia [Unknown]
  - Nausea [Not Recovered/Not Resolved]
  - Vomiting [Not Recovered/Not Resolved]
  - Diarrhoea [Not Recovered/Not Resolved]
  - Skin fissures [Unknown]

NARRATIVE: CASE EVENT DATE: 2015
